FAERS Safety Report 9675651 (Version 2)
Quarter: 2013Q4

REPORT INFORMATION
  Report Type: Spontaneous
  Country: US (occurrence: US)
  Receive Date: 20131107
  Receipt Date: 20131112
  Transmission Date: 20140711
  Serious: No
  Sender: FDA-Public Use
  Company Number: US-009507513-1311USA002366

PATIENT
  Age: 83 Year
  Sex: Female

DRUGS (2)
  1. DULERA [Suspect]
     Dosage: 2 PUFFS, BID
     Route: 055
     Dates: start: 20131017
  2. PROAIR (ALBUTEROL SULFATE) [Concomitant]
     Dosage: UNKNOWN

REACTIONS (4)
  - Dyspnoea [Not Recovered/Not Resolved]
  - Incorrect dose administered [Unknown]
  - Product quality issue [Unknown]
  - No adverse event [Unknown]
